FAERS Safety Report 9604556 (Version 5)
Quarter: 2019Q2

REPORT INFORMATION
  Report Type: Spontaneous
  Country: US (occurrence: US)
  Receive Date: 20131008
  Receipt Date: 20190627
  Transmission Date: 20190711
  Serious: Yes (Other)
  Sender: FDA-Public Use
  Company Number: US-PFIZER INC-2013284928

PATIENT
  Age: 73 Year
  Sex: Male
  Weight: 74.39 kg

DRUGS (9)
  1. RAPAMUNE [Suspect]
     Active Substance: SIROLIMUS
     Indication: HEART TRANSPLANT
     Dosage: UNK
  2. CLOPIDOGREL [Concomitant]
     Active Substance: CLOPIDOGREL BISULFATE
     Indication: ANTICOAGULANT THERAPY
     Dosage: 75 MG, UNK
     Dates: start: 20160514
  3. PREDNISONE. [Concomitant]
     Active Substance: PREDNISONE
     Indication: HEART TRANSPLANT
     Dosage: 2.5 MG, 1X/DAY
     Dates: start: 2002
  4. TRADJENTA [Concomitant]
     Active Substance: LINAGLIPTIN
     Indication: DIABETES MELLITUS
     Dosage: 5 MG, UNK
  5. RAPAMUNE [Suspect]
     Active Substance: SIROLIMUS
     Indication: ELECTROCARDIOGRAM ABNORMAL
     Dosage: 1 MG, ALTERNATE DAY(1 TABLET EVERY OTHER DAY 90 DAYS)
     Route: 048
     Dates: start: 2002
  6. RAPAMUNE [Suspect]
     Active Substance: SIROLIMUS
     Indication: IMMUNOSUPPRESSION
     Dosage: 1 MG, DAILY
     Route: 048
  7. RAPAMUNE [Suspect]
     Active Substance: SIROLIMUS
     Dosage: UNK
  8. RAPAMUNE [Suspect]
     Active Substance: SIROLIMUS
     Dosage: UNK
  9. BRILINTA [Concomitant]
     Active Substance: TICAGRELOR
     Indication: STENT PLACEMENT
     Dosage: UNK, 2X/DAY

REACTIONS (4)
  - Product use in unapproved indication [Unknown]
  - Off label use [Unknown]
  - Malaise [Unknown]
  - Hernia [Unknown]
